FAERS Safety Report 5160512-2 (Version None)
Quarter: 2006Q4

REPORT INFORMATION
  Report Type: 
  Country: None (occurrence: None)
  Receive Date: 20061129
  Receipt Date: 20061122
  Transmission Date: 20070319
  Serious: Yes (Hospitalization)
  Sender: FDA-Public Use
  Company Number: US-ROXANE LABORATORIES, INC-2006-DE-06211GD

PATIENT
  Age: 81 Year
  Sex: Female

DRUGS (6)
  1. HYDROCHLOROTHIAZIDE [Suspect]
     Dosage: MAINTENANCE DOSE
  2. ESCITALOPRAM [Suspect]
     Indication: DEPRESSION
  3. MIRTAZAPINE [Suspect]
     Dosage: MAINTENANCE DOSE
  4. RAMIPRIL [Suspect]
     Dosage: MAINTENANCE DOSE
  5. DONEPEZIL HCL [Suspect]
     Dosage: MAINTENANCE DOSE
  6. ALENDRONIC ACID [Suspect]
     Dosage: MAINTENANCE DOSE

REACTIONS (11)
  - ASTHENIA [None]
  - CONFUSIONAL STATE [None]
  - DRUG INTERACTION [None]
  - FALL [None]
  - FANCONI SYNDROME ACQUIRED [None]
  - GLYCOSURIA [None]
  - HYPERPHOSPHATURIA [None]
  - HYPOURICAEMIA [None]
  - INAPPROPRIATE ANTIDIURETIC HORMONE SECRETION [None]
  - RENAL TUBULAR DISORDER [None]
  - URINE ELECTROLYTES INCREASED [None]
